FAERS Safety Report 21196138 (Version 1)
Quarter: 2022Q3

REPORT INFORMATION
  Report Type: Spontaneous
  Country: US (occurrence: None)
  Receive Date: 20220810
  Receipt Date: 20220810
  Transmission Date: 20221027
  Serious: Yes (Other)
  Sender: FDA-Public Use
  Company Number: None

PATIENT
  Sex: Female
  Weight: 65.25 kg

DRUGS (4)
  1. STELARA [Suspect]
     Active Substance: USTEKINUMAB
     Indication: Psoriasis
     Dosage: OTHER FREQUENCY : WEEK ZERO DOSE;?
     Route: 058
     Dates: start: 20220802
  2. clobetasol 0.05% external ointment [Concomitant]
  3. folic acid 1 mg [Concomitant]
  4. METHOTREXATE [Concomitant]
     Active Substance: METHOTREXATE

REACTIONS (7)
  - SARS-CoV-2 test positive [None]
  - Vomiting [None]
  - Nausea [None]
  - Oropharyngeal pain [None]
  - Pyrexia [None]
  - Cough [None]
  - Chest pain [None]
